FAERS Safety Report 6768510-X (Version None)
Quarter: 2010Q2

REPORT INFORMATION
  Report Type: 
  Country: None (occurrence: None)
  Receive Date: 20100614
  Receipt Date: 20100609
  Transmission Date: 20101027
  Serious: Yes (Death)
  Sender: FDA-Public Use
  Company Number: US-PFIZER INC-2009316444

PATIENT
  Sex: Male
  Weight: 58.513 kg

DRUGS (15)
  1. REVATIO [Suspect]
     Indication: PULMONARY HYPERTENSION
     Dosage: 20 MG, 3X/DAY
     Route: 048
     Dates: start: 20080115
  2. ZANTAC [Concomitant]
     Indication: GASTRIC DISORDER
     Dosage: FREQUENCY: 2X/DAY,
     Route: 048
  3. MIRTAZAPINE [Concomitant]
     Dosage: 15 MG, 1X/DAY
  4. HYDROCODONE [Concomitant]
     Indication: PAIN
     Dosage: 500 MG, UNK
  5. SYNTHROID [Concomitant]
     Indication: HYPOTHYROIDISM
     Dosage: 75 UG, 1X/DAY
  6. FERROUS SULFATE [Concomitant]
     Indication: ANAEMIA
     Dosage: FREQUENCY: 2X/DAY,
  7. LANOXIN [Concomitant]
     Dosage: 0.125 MG, UNK
     Route: 048
  8. ALDACTONE [Concomitant]
     Dosage: 25 MG, 1X/DAY
     Route: 048
  9. PROCRIT [Concomitant]
     Indication: ANAEMIA
     Dosage: FREQUENCY: EVERY OTHER WEEK,
  10. ACETYLSALICYLIC ACID [Concomitant]
     Indication: PROPHYLAXIS
     Dosage: 81 MG, 1X/DAY
  11. TOPROL-XL [Concomitant]
     Indication: CARDIAC FAILURE
     Dosage: 25 MG, 1X/DAY
     Route: 048
  12. FUROSEMIDE [Concomitant]
     Indication: CARDIAC FAILURE
     Dosage: FREQUENCY: 2X/DAY,
  13. FOLIC ACID [Concomitant]
     Dosage: 1 MG, 1X/DAY
  14. CLARITIN [Concomitant]
     Indication: HYPERSENSITIVITY
     Dosage: UNK
  15. COLCHICINE [Concomitant]
     Indication: GOUT
     Dosage: UNK

REACTIONS (1)
  - DEATH [None]
